FAERS Safety Report 7313657-2 (Version None)
Quarter: 2011Q1

REPORT INFORMATION
  Report Type: 
  Country: None (occurrence: None)
  Receive Date: 20110225
  Receipt Date: 20090403
  Transmission Date: 20110831
  Serious: Yes (Hospitalization, Other)
  Sender: FDA-Public Use
  Company Number: US-BAYER-200922733NA

PATIENT
  Sex: Male
  Weight: 72.562 kg

DRUGS (36)
  1. RED BLOOD CELLS [Concomitant]
     Dosage: 1 U, UNK
     Dates: start: 19991212
  2. BUMEX [Concomitant]
     Dosage: UNK
     Dates: start: 19991216
  3. PERCOCET [Concomitant]
     Dosage: UNK
     Dates: start: 19990101
  4. HEPARIN [Concomitant]
     Indication: CATHETERISATION CARDIAC
     Dosage: 2.000 U, UNK
     Route: 042
     Dates: start: 20091208, end: 20091208
  5. FENTANYL [Concomitant]
     Indication: CATHETERISATION CARDIAC
     Dosage: 100 ?G, UNK
     Route: 042
     Dates: start: 19991208, end: 19991208
  6. SUFENTA PRESERVATIVE FREE [Concomitant]
     Dosage: 3 ML, UNK
     Dates: start: 19991213, end: 19991213
  7. PLATELETS [Concomitant]
     Dosage: 2 U, UNK
     Dates: start: 19991213
  8. ASPIRIN [Concomitant]
     Dosage: UNK
     Dates: start: 19990101
  9. NITROGLYCERIN [Concomitant]
     Dosage: 0.5 MCG/KG/MIN
     Route: 042
     Dates: start: 19991213, end: 19991214
  10. CORLOPAM [Concomitant]
     Dosage: UNK
     Dates: start: 19991213
  11. PLATELETS [Concomitant]
     Dosage: UNK
     Dates: start: 19991214
  12. MD-76 [Concomitant]
     Indication: CATHETERISATION CARDIAC
     Dosage: 200 ML, UNK
     Dates: start: 19991208
  13. HEPARIN [Concomitant]
     Dosage: UNK
     Route: 041
     Dates: end: 19991210
  14. CALCIUM CHLORIDE [Concomitant]
     Dosage: 1 G, UNK
     Route: 042
     Dates: start: 19991213, end: 19991213
  15. TRASYLOL [Suspect]
     Indication: CORONARY ARTERY BYPASS
  16. VERSED [Concomitant]
     Indication: CATHETERISATION CARDIAC
     Dosage: 4 MG, UNK
     Route: 042
     Dates: start: 19991208, end: 19991208
  17. TRASYLOL [Suspect]
     Indication: AORTIC VALVE REPLACEMENT
     Dosage: 200 ML FOLLOWED BY CONT. INFUSION AT 50CC/HR
     Route: 042
     Dates: start: 19991213, end: 19991213
  18. MAGNESIUM SULFATE [Concomitant]
     Dosage: 1 G, UNK
     Route: 042
     Dates: start: 19991213, end: 19991213
  19. LASIX [Concomitant]
     Dosage: 40 MG, UNK
     Route: 042
     Dates: start: 19991213, end: 19991213
  20. RED BLOOD CELLS [Concomitant]
     Dosage: 2 U, UNK
     Dates: start: 19991214
  21. RED BLOOD CELLS [Concomitant]
     Dosage: 1 U, UNK
     Dates: start: 19991215
  22. RED BLOOD CELLS [Concomitant]
     Dosage: 1 U, UNK
     Dates: start: 19991216
  23. CARDURA [Concomitant]
     Dosage: 2 MG, UNK
     Route: 048
     Dates: start: 19990101, end: 19991219
  24. ZOCOR [Concomitant]
     Dosage: UNK
     Dates: start: 19990101
  25. ANCEF [Concomitant]
     Dosage: 2 G, UNK
     Route: 042
     Dates: start: 19991213, end: 19991213
  26. RED BLOOD CELLS [Concomitant]
     Dosage: UNK
     Dates: start: 19991211
  27. RED BLOOD CELLS [Concomitant]
     Dosage: 3 U, UNK
     Dates: start: 19991213
  28. RED BLOOD CELLS [Concomitant]
     Dosage: 1 U, UNK
     Dates: start: 19991219
  29. PROTAMINE SULFATE [Concomitant]
     Dosage: UNK
     Route: 042
     Dates: start: 19991213, end: 19991214
  30. PROCANBID [Concomitant]
     Dosage: UNK
     Dates: start: 19990101
  31. VERSED [Concomitant]
     Dosage: 5 MG, UNK
     Route: 042
     Dates: start: 19991213, end: 19991213
  32. PREVACID [Concomitant]
     Dosage: 30 MG, UNK
     Route: 048
     Dates: start: 19970101
  33. KEFLEX [Concomitant]
     Dosage: UNK
     Dates: start: 19990101
  34. DOXIDAN [DANTRON,DOCUSATE CALCIUM] [Concomitant]
     Dosage: UNK
     Dates: start: 19990101
  35. PAPAVERINE [Concomitant]
     Dosage: 300 MG, UNK
     Dates: start: 19991213, end: 19991213
  36. CONTRAST MEDIA [Concomitant]
     Indication: SCAN MYOCARDIAL PERFUSION
     Dosage: UNK
     Dates: start: 19991202

REACTIONS (9)
  - EMOTIONAL DISTRESS [None]
  - UNEVALUABLE EVENT [None]
  - RENAL IMPAIRMENT [None]
  - ANXIETY [None]
  - FEAR [None]
  - RENAL FAILURE [None]
  - RENAL INJURY [None]
  - STRESS [None]
  - PAIN [None]
